FAERS Safety Report 8948966 (Version 2)
Quarter: 2013Q1

REPORT INFORMATION
  Report Type: Spontaneous
  Country: US (occurrence: US)
  Receive Date: 20121206
  Receipt Date: 20130116
  Transmission Date: 20140127
  Serious: Yes (Hospitalization, Other)
  Sender: FDA-Public Use
  Company Number: US-009507513-1212USA001034

PATIENT
  Sex: 0

DRUGS (1)
  1. PROVENTIL [Suspect]
     Route: 055

REACTIONS (6)
  - Respiratory tract infection [Unknown]
  - Aphonia [Unknown]
  - Pain [Unknown]
  - Malaise [Unknown]
  - Haemoptysis [Unknown]
  - Product quality issue [Unknown]
